FAERS Safety Report 23893048 (Version 1)
Quarter: 2024Q2

REPORT INFORMATION
  Report Type: Report from Study
  Country: CA (occurrence: CA)
  Receive Date: 20240524
  Receipt Date: 20240524
  Transmission Date: 20240716
  Serious: Yes (Other)
  Sender: FDA-Public Use
  Company Number: CA-BIOCON BIOLOGICS LIMITED-BBL2024003552

PATIENT

DRUGS (2)
  1. HULIO [Suspect]
     Active Substance: ADALIMUMAB-FKJP
     Indication: Psoriasis
     Dosage: UNK, Q2W, (SOLUTION)
     Route: 065
  2. HULIO [Suspect]
     Active Substance: ADALIMUMAB-FKJP
     Dosage: 40 MILLIGRAM (SOLUTION)
     Route: 065

REACTIONS (5)
  - Psoriasis [Unknown]
  - Bone pain [Unknown]
  - Kidney infection [Unknown]
  - Product dose omission issue [Unknown]
  - Drug ineffective [Unknown]
